FAERS Safety Report 15243428 (Version 2)
Quarter: 2018Q3

REPORT INFORMATION
  Report Type: Spontaneous
  Country: JP (occurrence: JP)
  Receive Date: 20180806
  Receipt Date: 20180820
  Transmission Date: 20181010
  Serious: No
  Sender: FDA-Public Use
  Company Number: JP-ALLERGAN-1838608US

PATIENT
  Age: 58 Year
  Sex: Female

DRUGS (1)
  1. ACAMPROSATE CALCIUM ? BP [Suspect]
     Active Substance: ACAMPROSATE CALCIUM
     Indication: PRODUCT USED FOR UNKNOWN INDICATION
     Dosage: 333 MG, UNKNOWN
     Route: 048

REACTIONS (1)
  - No adverse event [Unknown]
